FAERS Safety Report 10905983 (Version 1)
Quarter: 2015Q1

REPORT INFORMATION
  Report Type: Spontaneous
  Country: US (occurrence: None)
  Receive Date: 20150212
  Receipt Date: 20150212
  Transmission Date: 20150721
  Serious: Yes (Death)
  Sender: FDA-Public Use
  Company Number: LIT-008-15-US

PATIENT
  Age: 5 Year
  Sex: Female

DRUGS (5)
  1. HUMAN NORMAL IMMUNOGLOBULIN (IV) (TRADENAME UNKNOWN)? [Suspect]
     Active Substance: HUMAN IMMUNOGLOBULIN G
     Indication: HYPOGAMMAGLOBULINAEMIA
     Dates: start: 201301, end: 201301
  2. MYCOPHENOLATE MOFETIL. [Concomitant]
     Active Substance: MYCOPHENOLATE MOFETIL
  3. DIPHENHYDRAMINE [Concomitant]
     Active Substance: DIPHENHYDRAMINE
  4. SIROLIMUS. [Concomitant]
     Active Substance: SIROLIMUS
  5. ACETAMINOPHEN. [Concomitant]
     Active Substance: ACETAMINOPHEN

REACTIONS (6)
  - Coronary artery stenosis [None]
  - Unresponsive to stimuli [None]
  - Vascular graft complication [None]
  - Myocardial ischaemia [None]
  - Pneumonia [None]
  - Blood viscosity increased [None]

NARRATIVE: CASE EVENT DATE: 201301
